FAERS Safety Report 9445863 (Version 2)
Quarter: 2013Q3

REPORT INFORMATION
  Report Type: Spontaneous
  Country: IT (occurrence: IT)
  Receive Date: 20130807
  Receipt Date: 20130926
  Transmission Date: 20140515
  Serious: Yes (Hospitalization)
  Sender: FDA-Public Use
  Company Number: IT-BRISTOL-MYERS SQUIBB COMPANY-19158179

PATIENT
  Age: 80 Year
  Sex: Male
  Weight: 73 kg

DRUGS (7)
  1. COUMADIN [Suspect]
     Indication: ATRIAL FIBRILLATION
     Dosage: 1 DF= 1 UNIT
     Route: 048
     Dates: start: 20100101, end: 20130604
  2. HALCION [Concomitant]
     Dosage: TABS
     Route: 048
  3. FLUSPIRAL [Concomitant]
     Dosage: 250 MCG PRESSURIZED SUSPENSION DOSAGE/4/UNIT/INHAL
     Route: 055
  4. OXIS [Concomitant]
     Dosage: DOSAGE/1/UNIT/INHAL.
     Route: 055
  5. TERAZOSIN [Concomitant]
     Dosage: 5 MG TAB
     Route: 048
  6. DIAZEPAM [Concomitant]
     Dosage: 2 MG TAB
     Route: 048
  7. SPIRIVA [Concomitant]
     Route: 055

REACTIONS (2)
  - Subdural haematoma [Recovering/Resolving]
  - Head injury [Unknown]
